FAERS Safety Report 4327175-7 (Version None)
Quarter: 2004Q1

REPORT INFORMATION
  Report Type: 
  Country: None (occurrence: None)
  Receive Date: 20040330
  Receipt Date: 20040319
  Transmission Date: 20041129
  Serious: Yes (Other)
  Sender: FDA-Public Use
  Company Number: PHBS2004JP03983

PATIENT
  Age: 58 Year
  Sex: Male

DRUGS (2)
  1. DIOVAN [Suspect]
     Indication: HYPERTENSION
     Dosage: 80 MG/DAY
     Route: 048
  2. NIFEDIPINE [Suspect]
     Dosage: 2.5 MG/DAY
     Route: 048

REACTIONS (1)
  - LEIOMYOMA [None]
